FAERS Safety Report 5645364-6 (Version None)
Quarter: 2008Q1

REPORT INFORMATION
  Report Type: 
  Country: None (occurrence: None)
  Receive Date: 20080229
  Receipt Date: 20080218
  Transmission Date: 20080703
  Serious: Yes (Life-Threatening)
  Sender: FDA-Public Use
  Company Number: US-ROCHE-546211

PATIENT
  Age: 44 Year
  Sex: Female
  Weight: 85.3 kg

DRUGS (2)
  1. TAMIFLU [Suspect]
     Route: 048
     Dates: start: 20080123, end: 20080125
  2. MESTINON [Concomitant]
     Indication: MYASTHENIA GRAVIS

REACTIONS (3)
  - DELUSION [None]
  - DEPRESSION [None]
  - SUICIDAL IDEATION [None]
